FAERS Safety Report 4517577-8 (Version None)
Quarter: 2004Q4

REPORT INFORMATION
  Report Type: 
  Country: None (occurrence: None)
  Receive Date: 20041130
  Receipt Date: 20041111
  Transmission Date: 20050328
  Serious: Yes (Other)
  Sender: FDA-Public Use
  Company Number: US_0409105156

PATIENT
  Sex: Female
  Weight: 56 kg

DRUGS (3)
  1. FORTEO [Suspect]
     Indication: OSTEOPOROSIS
     Dosage: 20UG/1 DAY
     Dates: start: 20040630
  2. NORVASC [Concomitant]
  3. CLONAZEPAM [Concomitant]

REACTIONS (1)
  - NO ADVERSE DRUG EFFECT [None]
